FAERS Safety Report 6925453-6 (Version None)
Quarter: 2010Q3

REPORT INFORMATION
  Report Type: 
  Country: None (occurrence: None)
  Receive Date: 20100816
  Receipt Date: 20100806
  Transmission Date: 20110219
  Serious: Yes (Life-Threatening)
  Sender: FDA-Public Use
  Company Number: GB-JNJFOC-20100600145

PATIENT
  Age: 68 Year
  Sex: Female

DRUGS (19)
  1. INFLIXIMAB [Suspect]
     Indication: PSORIASIS
     Route: 042
  2. INFLIXIMAB [Suspect]
     Route: 042
  3. INFLIXIMAB [Suspect]
     Indication: CROHN'S DISEASE
     Route: 042
  4. INFLIXIMAB [Suspect]
     Route: 042
  5. STELARA [Suspect]
     Indication: CROHN'S DISEASE
     Route: 058
  6. STELARA [Suspect]
     Route: 058
  7. STELARA [Suspect]
     Route: 058
  8. STELARA [Suspect]
     Indication: PSORIASIS
     Route: 058
  9. STELARA [Suspect]
     Route: 058
  10. STELARA [Suspect]
     Route: 058
  11. HUMIRA [Suspect]
     Indication: PRODUCT USED FOR UNKNOWN INDICATION
     Route: 050
  12. AZATHIOPRINE [Suspect]
     Indication: CROHN'S DISEASE
     Route: 050
  13. AZATHIOPRINE [Suspect]
     Route: 050
  14. AZATHIOPRINE [Suspect]
     Route: 050
  15. RABEPRAZOLE SODIUM [Concomitant]
  16. GABAPENTIN [Concomitant]
  17. METOCLOPRAMIDE [Concomitant]
  18. ORAMORPH SR [Concomitant]
  19. PREDNISOLONE [Concomitant]

REACTIONS (4)
  - ANAPLASTIC LARGE CELL LYMPHOMA T- AND NULL-CELL TYPES [None]
  - CROHN'S DISEASE [None]
  - HOSPITALISATION [None]
  - NECK PAIN [None]
